FAERS Safety Report 20224064 (Version 1)
Quarter: 2021Q4

REPORT INFORMATION
  Report Type: Spontaneous
  Country: IT (occurrence: IT)
  Receive Date: 20211223
  Receipt Date: 20211223
  Transmission Date: 20220303
  Serious: Yes (Hospitalization)
  Sender: FDA-Public Use
  Company Number: IT-ABBVIE-21K-083-4206951-00

PATIENT
  Age: 55 Year
  Sex: Female

DRUGS (7)
  1. VALPROATE SODIUM [Suspect]
     Active Substance: VALPROATE SODIUM
     Indication: Intentional self-injury
     Route: 048
     Dates: start: 20180328, end: 20180328
  2. FLURAZEPAM HYDROCHLORIDE [Concomitant]
     Active Substance: FLURAZEPAM HYDROCHLORIDE
     Indication: Product used for unknown indication
  3. AMISULPRIDE [Concomitant]
     Active Substance: AMISULPRIDE
     Indication: Product used for unknown indication
  4. TRAZODONE HYDROCHLORIDE [Concomitant]
     Active Substance: TRAZODONE HYDROCHLORIDE
     Indication: Product used for unknown indication
  5. DELORAZEPAM [Concomitant]
     Active Substance: DELORAZEPAM
     Indication: Product used for unknown indication
  6. VENLAFAXINE HYDROCHLORIDE [Concomitant]
     Active Substance: VENLAFAXINE HYDROCHLORIDE
     Indication: Product used for unknown indication
  7. OLANZAPINE [Concomitant]
     Active Substance: OLANZAPINE
     Indication: Product used for unknown indication

REACTIONS (2)
  - Intentional overdose [Unknown]
  - Vomiting [Recovered/Resolved]

NARRATIVE: CASE EVENT DATE: 20180328
